FAERS Safety Report 25705810 (Version 1)
Quarter: 2025Q3

REPORT INFORMATION
  Report Type: Spontaneous
  Country: US (occurrence: None)
  Receive Date: 20250819
  Receipt Date: 20250819
  Transmission Date: 20251020
  Serious: Yes (Other)
  Sender: FDA-CTU
  Company Number: None

PATIENT
  Age: 47 Year
  Sex: Male
  Weight: 63.54 kg

DRUGS (2)
  1. SUBLOCADE [Suspect]
     Active Substance: BUPRENORPHINE
     Indication: Drug use disorder
     Route: 030
     Dates: start: 20221125
  2. Lidocaine/epinephrine topical injection [Concomitant]
     Dates: start: 20250723

REACTIONS (2)
  - Injection site ulcer [None]
  - Impaired healing [None]

NARRATIVE: CASE EVENT DATE: 20250723
